FAERS Safety Report 23062089 (Version 1)
Quarter: 2023Q4

REPORT INFORMATION
  Report Type: Spontaneous
  Country: CN (occurrence: CN)
  Receive Date: 20231013
  Receipt Date: 20231013
  Transmission Date: 20240109
  Serious: Yes (Other)
  Sender: FDA-Public Use
  Company Number: CN-AMGEN-CHNSP2023180175

PATIENT
  Age: 55 Year
  Sex: Male
  Weight: 65 kg

DRUGS (6)
  1. KYPROLIS [Suspect]
     Active Substance: CARFILZOMIB
     Indication: Plasma cell myeloma
     Dosage: 50 MILLIGRAM
     Route: 042
     Dates: start: 20230810, end: 20230810
  2. KYPROLIS [Suspect]
     Active Substance: CARFILZOMIB
     Dosage: 50 MILLIGRAM
     Route: 042
     Dates: start: 20230811, end: 20230811
  3. CYCLOPHOSPHAMIDE [Suspect]
     Active Substance: CYCLOPHOSPHAMIDE
     Indication: Plasma cell myeloma
     Dosage: 0.5 GRAM
     Route: 042
     Dates: start: 20230810, end: 20230810
  4. SODIUM CHLORIDE [Concomitant]
     Active Substance: SODIUM CHLORIDE
     Dosage: 250 MILLILITER
     Route: 042
     Dates: start: 20230810, end: 20230810
  5. DEXTROSE [Concomitant]
     Active Substance: DEXTROSE\DEXTROSE MONOHYDRATE
     Dosage: 100 MILLILITER
     Route: 042
     Dates: start: 20230810, end: 20230810
  6. DEXTROSE [Concomitant]
     Active Substance: DEXTROSE\DEXTROSE MONOHYDRATE
     Dosage: 100 MILLILITER
     Route: 042
     Dates: start: 20230811, end: 20230811

REACTIONS (1)
  - Bicytopenia [Recovering/Resolving]

NARRATIVE: CASE EVENT DATE: 20230821
